FAERS Safety Report 19898792 (Version 4)
Quarter: 2022Q1

REPORT INFORMATION
  Report Type: Report from Study
  Country: CO (occurrence: CO)
  Receive Date: 20210929
  Receipt Date: 20220117
  Transmission Date: 20220423
  Serious: Yes (Hospitalization, Other)
  Sender: FDA-Public Use
  Company Number: CO-BRISTOL-MYERS SQUIBB COMPANY-BMS-2021-096773

PATIENT
  Age: 78 Year
  Sex: Female
  Weight: 58 kg

DRUGS (3)
  1. NIVOLUMAB [Suspect]
     Active Substance: NIVOLUMAB
     Indication: Renal cancer
     Dosage: 174 MILLIGRAM, Q3WK
     Route: 042
     Dates: start: 20210723
  2. NIVOLUMAB [Suspect]
     Active Substance: NIVOLUMAB
     Dosage: 168 MILLIGRAM, EVERY 15 DAYS
     Route: 042
  3. YERVOY [Suspect]
     Active Substance: IPILIMUMAB
     Indication: Renal cancer
     Dosage: 58 MILLIGRAM, Q3WK
     Route: 042
     Dates: start: 20210723

REACTIONS (6)
  - Swelling [Recovering/Resolving]
  - Abdominal pain [Recovering/Resolving]
  - Pain [Not Recovered/Not Resolved]
  - General physical health deterioration [Recovering/Resolving]
  - Therapy non-responder [Recovering/Resolving]
  - Intentional product use issue [Unknown]

NARRATIVE: CASE EVENT DATE: 20210914
